FAERS Safety Report 5152658-X (Version None)
Quarter: 2006Q4

REPORT INFORMATION
  Report Type: 
  Country: None (occurrence: None)
  Receive Date: 20061109
  Receipt Date: 20061031
  Transmission Date: 20070319
  Serious: Yes (Other)
  Sender: FDA-Public Use
  Company Number: 2006132927

PATIENT
  Sex: Female
  Weight: 54.4316 kg

DRUGS (2)
  1. NEOSPORIN [Suspect]
     Indication: CAUSTIC INJURY
     Dosage: 1 SQIURT PER HAND TWICE A DAY, TOPICAL
     Route: 061
     Dates: start: 20061001, end: 20061030
  2. LEVOTHYROXINE SODIUM [Concomitant]

REACTIONS (2)
  - CAUSTIC INJURY [None]
  - CONDITION AGGRAVATED [None]
